FAERS Safety Report 19667957 (Version 1)
Quarter: 2021Q3

REPORT INFORMATION
  Report Type: Spontaneous
  Country: GB (occurrence: GB)
  Receive Date: 20210806
  Receipt Date: 20210806
  Transmission Date: 20211014
  Serious: Yes (Disabling)
  Sender: FDA-Public Use
  Company Number: GB-PFIZER INC-202100969423

PATIENT
  Age: 61 Year
  Sex: Male
  Weight: 74 kg

DRUGS (18)
  1. PREDNISOLONE. [Concomitant]
     Active Substance: PREDNISOLONE
     Dosage: 7 DF
     Dates: start: 20210716, end: 20210721
  2. FLUCONAZOLE. [Suspect]
     Active Substance: FLUCONAZOLE
     Dosage: 50 MG, 1X/DAY
     Dates: start: 20210722, end: 20210724
  3. NYSTATIN. [Concomitant]
     Active Substance: NYSTATIN
     Dosage: 1 ML, 4X/DAY
     Dates: start: 20210727
  4. PARACETAMOL [Concomitant]
     Active Substance: ACETAMINOPHEN
     Dosage: 1?2 TABLETS 4 TIMES A DAY AS NEEDED
     Dates: start: 20200717
  5. FEXOFENADINE [Concomitant]
     Active Substance: FEXOFENADINE HYDROCHLORIDE
     Dosage: 1 DF, 1X/DAY
     Dates: start: 20200717
  6. FORTISIP [Concomitant]
     Active Substance: CARBOHYDRATES\FATTY ACIDS\MINERALS\PROTEIN\VITAMINS
     Dosage: USE AS DIRECTED
     Dates: start: 20200717
  7. ATORVASTATIN [Concomitant]
     Active Substance: ATORVASTATIN
     Dosage: 1 DF, 1X/DAY
     Dates: start: 20210430
  8. BRALTUS [Concomitant]
     Active Substance: TIOTROPIUM BROMIDE
     Dosage: 1 DF, 1X/DAY, INHALE THE CONTENTS OF ONE CAPSULE ONCE DAILY
     Route: 055
     Dates: start: 20201111
  9. CARBOCISTEINE [Concomitant]
     Active Substance: CARBOCYSTEINE
     Dosage: 2 DF, 3X/DAY
     Dates: start: 20201111
  10. GAVISCON [ALGINIC ACID;ALUMINIUM HYDROXIDE;MAGNESIUM TRISILICATE;SODIU [Concomitant]
     Dosage: USE AS DIRECTED
     Dates: start: 20200717
  11. SYMBICORT [Concomitant]
     Active Substance: BUDESONIDE\FORMOTEROL FUMARATE DIHYDRATE
     Dosage: 1 DF, 2X/DAY
     Route: 055
     Dates: start: 20201111
  12. TRAMADOL. [Concomitant]
     Active Substance: TRAMADOL
     Dosage: 1?2 THREE TIMES A DAY
     Dates: start: 20200717
  13. RANITIDINE. [Concomitant]
     Active Substance: RANITIDINE
     Dosage: 1 DF
     Dates: start: 20200717
  14. ADCAL [CALCIUM CARBONATE] [Concomitant]
     Dosage: 2 DF, 2X/DAY
     Dates: start: 20200717
  15. ASPIRIN [ACETYLSALICYLIC ACID] [Concomitant]
     Active Substance: ASPIRIN
     Dosage: 1 DF, 1X/DAY
     Dates: start: 20210430
  16. DYMISTA [Concomitant]
     Active Substance: AZELASTINE HYDROCHLORIDE\FLUTICASONE PROPIONATE
     Dosage: 1 DF, 2X/DAY
     Route: 055
     Dates: start: 20200717
  17. ESOMEPRAZOLE. [Concomitant]
     Active Substance: ESOMEPRAZOLE MAGNESIUM
     Dosage: 1 DF, 1X/DAY
     Dates: start: 20200717
  18. VENTOLIN [Concomitant]
     Active Substance: ALBUTEROL SULFATE
     Dosage: 2 DF
     Route: 055
     Dates: start: 20201111

REACTIONS (4)
  - Myalgia [Recovered/Resolved]
  - Eye pain [Recovered/Resolved]
  - Bone pain [Recovered/Resolved]
  - Cold sweat [Recovered/Resolved]
